FAERS Safety Report 14656328 (Version 1)
Quarter: 2018Q1

REPORT INFORMATION
  Report Type: Spontaneous
  Country: US (occurrence: US)
  Receive Date: 20180319
  Receipt Date: 20180319
  Transmission Date: 20180509
  Serious: Yes (Other)
  Sender: FDA-Public Use
  Company Number: US-IGSA-SR10006002

PATIENT
  Age: 58 Year
  Sex: Female

DRUGS (8)
  1. RITUXAN [Concomitant]
     Active Substance: RITUXIMAB
  2. FLEBOGAMMA DIF [Suspect]
     Active Substance: HUMAN IMMUNOGLOBULIN G
     Dosage: 40 G, Q.M.T.
     Route: 042
     Dates: start: 201802
  3. METHADONE [Concomitant]
     Active Substance: METHADONE HYDROCHLORIDE
     Indication: PAIN
  4. LEXAPRO [Concomitant]
     Active Substance: ESCITALOPRAM OXALATE
     Indication: PAIN
  5. LEXAPRO [Concomitant]
     Active Substance: ESCITALOPRAM OXALATE
     Indication: ANXIETY
  6. FLEBOGAMMA DIF [Suspect]
     Active Substance: HUMAN IMMUNOGLOBULIN G
     Indication: BEHCET^S SYNDROME
     Dosage: 40 G, Q.M.T.
     Route: 042
     Dates: start: 2010, end: 201711
  7. XANAX [Concomitant]
     Active Substance: ALPRAZOLAM
     Indication: ANXIETY
  8. MORPHINE [Concomitant]
     Active Substance: MORPHINE
     Indication: PAIN

REACTIONS (3)
  - Noninfective encephalitis [Recovered/Resolved]
  - Headache [Recovered/Resolved]
  - Myelitis [Recovered/Resolved]

NARRATIVE: CASE EVENT DATE: 201707
